FAERS Safety Report 5994995-2 (Version None)
Quarter: 2008Q4

REPORT INFORMATION
  Report Type: 
  Country: None (occurrence: None)
  Receive Date: 20081212
  Receipt Date: 20081208
  Transmission Date: 20090506
  Serious: Yes (Other)
  Sender: FDA-Public Use
  Company Number: ES-JNJCH-2008057042

PATIENT
  Age: 20 Month
  Sex: Female

DRUGS (1)
  1. ACETYLSALICYLIC ACID SRT [Suspect]
     Indication: VIRAL INFECTION
     Dosage: TEXT:UNSPECIFIED
     Route: 048

REACTIONS (2)
  - REYE'S SYNDROME [None]
  - WRONG DRUG ADMINISTERED [None]
